FAERS Safety Report 4336178-8 (Version None)
Quarter: 2004Q2

REPORT INFORMATION
  Report Type: 
  Country: None (occurrence: None)
  Receive Date: 20040407
  Receipt Date: 20040326
  Transmission Date: 20050107
  Serious: Yes (Death)
  Sender: FDA-Public Use
  Company Number: 2003-BP-07184PF

PATIENT
  Age: 65 Year
  Sex: Male

DRUGS (3)
  1. SPIRIVA [Suspect]
     Dosage: 18 MCG (18 MCG, DAILY) IH
     Route: 055
  2. COMVIVENT [Concomitant]
  3. VACCINE AGAINST PNEUMOCOCCUS [Concomitant]

REACTIONS (3)
  - BRONCHOSPASM [None]
  - RESPIRATORY ARREST [None]
  - VACCINATION COMPLICATION [None]
